FAERS Safety Report 7163453-4 (Version None)
Quarter: 2010Q4

REPORT INFORMATION
  Report Type: 
  Country: None (occurrence: None)
  Receive Date: 20101215
  Receipt Date: 20100419
  Transmission Date: 20110411
  Serious: Yes (Other)
  Sender: FDA-Public Use
  Company Number: US-PFIZER INC-2010049997

PATIENT
  Sex: Male

DRUGS (4)
  1. LYRICA [Suspect]
  2. NEURONTIN [Suspect]
     Indication: DIABETIC NEUROPATHY
     Dosage: 800 MG, 2X/DAY
     Route: 048
     Dates: start: 20080101
  3. GABAPENTIN [Suspect]
     Indication: DIABETIC NEUROPATHY
     Dosage: 800 MG, 2X/DAY
     Route: 048
     Dates: start: 20080101
  4. AMBIEN [Concomitant]
     Indication: INSOMNIA
     Dosage: UNK

REACTIONS (5)
  - ARTHRITIS [None]
  - DRUG INEFFECTIVE [None]
  - FIBROMYALGIA [None]
  - OEDEMA PERIPHERAL [None]
  - SOMNOLENCE [None]
